FAERS Safety Report 9681083 (Version 1)
Quarter: 2013Q4

REPORT INFORMATION
  Report Type: Spontaneous
  Country: CA (occurrence: None)
  Receive Date: 20131108
  Receipt Date: 20131108
  Transmission Date: 20140711
  Serious: Yes (Disabling, Other)
  Sender: FDA-Public Use
  Company Number: None

PATIENT
  Age: 45 Year
  Sex: Female
  Weight: 110 kg

DRUGS (1)
  1. NORTRIPTYLINE [Suspect]
     Indication: MIGRAINE
     Route: 048
     Dates: end: 20131106

REACTIONS (5)
  - Palpitations [None]
  - Blister [None]
  - Pruritus [None]
  - Product substitution issue [None]
  - Skin discolouration [None]
